FAERS Safety Report 24394127 (Version 1)
Quarter: 2024Q4

REPORT INFORMATION
  Report Type: Spontaneous
  Country: FR (occurrence: FR)
  Receive Date: 20241003
  Receipt Date: 20241003
  Transmission Date: 20250114
  Serious: Yes (Other)
  Sender: ORGANON
  Company Number: None

PATIENT
  Age: 27 Year
  Sex: Male
  Weight: 92 kg

DRUGS (1)
  1. PROPECIA [Suspect]
     Active Substance: FINASTERIDE
     Indication: Diffuse alopecia
     Dosage: 1 MILLIGRAM, QD
     Route: 048
     Dates: start: 20230801, end: 20240801

REACTIONS (2)
  - Loss of libido [Recovering/Resolving]
  - Genital pain [Recovering/Resolving]

NARRATIVE: CASE EVENT DATE: 20231013
